FAERS Safety Report 5230996-X (Version None)
Quarter: 2007Q1

REPORT INFORMATION
  Report Type: 
  Country: None (occurrence: None)
  Receive Date: 20070206
  Receipt Date: 20070124
  Transmission Date: 20070707
  Serious: Yes (Death, Hospitalization, Other)
  Sender: FDA-Public Use
  Company Number: DE-NOVOPROD-257011

PATIENT
  Sex: Male
  Weight: 78 kg

DRUGS (19)
  1. NOVOSEVEN [Suspect]
     Indication: CEREBRAL HAEMORRHAGE
     Dosage: 20 UG/KG, UNK
     Route: 042
     Dates: start: 20060914, end: 20060914
  2. IRBESARTAN [Concomitant]
     Indication: HYPERTENSION
     Dosage: 150 MG, QD
     Route: 048
     Dates: end: 20060914
  3. ASPIRIN [Concomitant]
     Indication: THROMBOSIS PROPHYLAXIS
     Dosage: 100 MG, QD
     Route: 048
     Dates: end: 20060914
  4. METOPROLOL SUCCINATE [Concomitant]
     Indication: CORONARY ARTERY DISEASE
     Dates: end: 20060915
  5. METOPROLOL SUCCINATE [Concomitant]
     Dosage: 95 MG, QD
     Route: 048
     Dates: start: 20060915, end: 20060924
  6. MOLSIDOMIN [Concomitant]
     Indication: CORONARY ARTERY DISEASE
     Route: 048
     Dates: end: 20060914
  7. ISOSORBIDE DINITRATE [Concomitant]
     Indication: CORONARY ARTERY DISEASE
     Dosage: 60 UNK, QD
     Route: 048
     Dates: end: 20060914
  8. LERCANIDIPINE [Concomitant]
     Indication: HYPERTENSION
     Dates: end: 20060914
  9. MORPHIN                            /00036302/ [Concomitant]
     Indication: PAIN
     Dosage: 100 MG, QD
     Route: 042
     Dates: start: 20060915, end: 20060924
  10. ENOXAPARIN SODIUM [Concomitant]
     Indication: THROMBOSIS PROPHYLAXIS
     Dosage: 20 MG, QD
     Route: 058
     Dates: start: 20060919, end: 20060923
  11. ACTRAPHANE 30/70 [Concomitant]
     Indication: DIABETES MELLITUS NON-INSULIN-DEPENDENT
     Dosage: UNK IU, QD
     Route: 058
     Dates: start: 20060914, end: 20060924
  12. METFORMIN HCL [Concomitant]
     Indication: DIABETES MELLITUS NON-INSULIN-DEPENDENT
     Dates: end: 20060914
  13. ALLOPURINOL SODIUM [Concomitant]
     Indication: HYPERURICAEMIA
     Dates: end: 20060914
  14. METOCLOPRAMIDE [Concomitant]
     Indication: NAUSEA
     Dates: start: 20060914, end: 20060915
  15. METAMIZOL                          /00039501/ [Concomitant]
     Indication: PYREXIA
     Dates: start: 20060914, end: 20060924
  16. AMOXICILLIN [Concomitant]
     Indication: PNEUMONIA
     Dates: start: 20060915, end: 20060920
  17. PANTOPRAZOLE SODIUM [Concomitant]
     Indication: PROPHYLAXIS AGAINST GASTROINTESTINAL ULCER
     Dates: start: 20060915, end: 20060922
  18. HYDROCHLOROTHIAZIDE [Concomitant]
     Indication: HYPERTENSION
     Dates: start: 20060915, end: 20060924
  19. POTASSIUM ACETATE [Concomitant]
     Indication: BLOOD POTASSIUM DECREASED
     Dates: start: 20060914, end: 20060920

REACTIONS (5)
  - LEFT VENTRICULAR FAILURE [None]
  - MYOCARDIAL INFARCTION [None]
  - PNEUMONIA [None]
  - SEPSIS [None]
  - SHOCK [None]
